FAERS Safety Report 7748230-5 (Version None)
Quarter: 2011Q3

REPORT INFORMATION
  Report Type: 
  Country: None (occurrence: None)
  Receive Date: 20110913
  Receipt Date: 20110620
  Transmission Date: 20111222
  Serious: Yes (Other)
  Sender: FDA-Public Use
  Company Number: US-ELI_LILLY_AND_COMPANY-US201106006364

PATIENT
  Sex: Male

DRUGS (2)
  1. URSODIOL [Concomitant]
     Dosage: 500 MG, BID
  2. CYMBALTA [Suspect]
     Indication: PAIN
     Dosage: 30 MG, QD
     Dates: end: 20110616

REACTIONS (2)
  - BLOOD BILIRUBIN INCREASED [None]
  - JAUNDICE [None]
